FAERS Safety Report 17228197 (Version 1)
Quarter: 2020Q1

REPORT INFORMATION
  Report Type: Spontaneous
  Country: CN (occurrence: CN)
  Receive Date: 20200103
  Receipt Date: 20200103
  Transmission Date: 20200409
  Serious: Yes (Death, Other)
  Sender: FDA-Public Use
  Company Number: CN-ROCHE-2513621

PATIENT
  Age: 52 Year
  Sex: Male

DRUGS (10)
  1. VINCRISTINE [Concomitant]
     Active Substance: VINCRISTINE
     Indication: DIFFUSE LARGE B-CELL LYMPHOMA STAGE IV
     Dosage: R-CHOP REGIMEN
     Route: 065
     Dates: start: 20170101
  2. PREDNISONE. [Concomitant]
     Active Substance: PREDNISONE
     Indication: DIFFUSE LARGE B-CELL LYMPHOMA STAGE IV
     Dosage: R-CHOP REGIMEN
     Route: 065
     Dates: start: 20170101
  3. CYCLOPHOSPHAMIDE. [Concomitant]
     Active Substance: CYCLOPHOSPHAMIDE
     Route: 048
     Dates: start: 20170101
  4. CISPLATIN. [Concomitant]
     Active Substance: CISPLATIN
     Indication: DIFFUSE LARGE B-CELL LYMPHOMA STAGE IV
     Dosage: R-GDP REGIMEN
     Route: 065
     Dates: start: 20170101
  5. RITUXIMAB. [Suspect]
     Active Substance: RITUXIMAB
     Dosage: R-GDP REGIMEN, TOTAL OF 600 MG OF RITUXIMAB WAS INTERMITTENTLY INFUSED FROM THE 3RD DAY TO THE 6TH D
     Route: 041
     Dates: start: 20170101
  6. GEMCITABINE. [Concomitant]
     Active Substance: GEMCITABINE
     Indication: DIFFUSE LARGE B-CELL LYMPHOMA STAGE IV
     Dosage: R-GDP REGIMEN
     Route: 065
     Dates: start: 20170101
  7. CYCLOPHOSPHAMIDE. [Concomitant]
     Active Substance: CYCLOPHOSPHAMIDE
     Indication: DIFFUSE LARGE B-CELL LYMPHOMA STAGE IV
     Dosage: R-CHOP REGIMEN
     Route: 065
     Dates: start: 20170101
  8. DOXORUBICIN [Concomitant]
     Active Substance: DOXORUBICIN
     Indication: DIFFUSE LARGE B-CELL LYMPHOMA STAGE IV
     Dosage: R-CHOP REGIMEN
     Route: 065
     Dates: start: 20170101
  9. DEXAMETHASONE. [Concomitant]
     Active Substance: DEXAMETHASONE
     Indication: DIFFUSE LARGE B-CELL LYMPHOMA STAGE IV
     Dosage: R-GDP REGIMEN
     Route: 065
     Dates: start: 20170101
  10. RITUXIMAB. [Suspect]
     Active Substance: RITUXIMAB
     Indication: DIFFUSE LARGE B-CELL LYMPHOMA STAGE IV
     Dosage: R-CHOP REGIMEN
     Route: 041
     Dates: start: 20170101

REACTIONS (4)
  - Rash [Unknown]
  - Pneumonia [Fatal]
  - Hypercalcaemia [Recovering/Resolving]
  - Pruritus [Unknown]
